FAERS Safety Report 9747569 (Version 1)
Quarter: 2013Q4

REPORT INFORMATION
  Report Type: Report from Study
  Country: CA (occurrence: CA)
  Receive Date: 20131212
  Receipt Date: 20131212
  Transmission Date: 20140711
  Serious: Yes (Hospitalization, Other)
  Sender: FDA-Public Use
  Company Number: CA-JNJFOC-20131204451

PATIENT
  Age: 61 Year
  Sex: Male
  Weight: 83 kg

DRUGS (5)
  1. REMICADE [Suspect]
     Indication: CROHN^S DISEASE
     Route: 042
     Dates: start: 20070701
  2. CEFTRIAXONE [Concomitant]
     Route: 065
  3. MORPHINE [Concomitant]
     Route: 065
  4. TYLENOL [Concomitant]
     Route: 065
  5. TERAZOSIN [Concomitant]
     Route: 065

REACTIONS (2)
  - Calculus ureteric [Not Recovered/Not Resolved]
  - Urosepsis [Not Recovered/Not Resolved]
